FAERS Safety Report 11290648 (Version 2)
Quarter: 2015Q3

REPORT INFORMATION
  Report Type: Spontaneous
  Country: JP (occurrence: None)
  Receive Date: 20150720
  Receipt Date: 20150818
  Transmission Date: 20151125
  Serious: Yes (Hospitalization, Other)
  Sender: FDA-Public Use
  Company Number: 2015FE02123

PATIENT
  Age: 83 Year
  Sex: Male
  Weight: 45 kg

DRUGS (7)
  1. GONAX (DEGARELIX) POWDER AND SOLVENT FOR SOLUTION FOR INJECTION [Suspect]
     Active Substance: DEGARELIX
     Indication: PROSTATE CANCER
     Dosage: 240 MG, ONCE/SINGLE
     Route: 058
     Dates: start: 20150106, end: 20150106
  2. ARTIST (CARVEDILOL) (CARVEDILOL) [Concomitant]
     Active Substance: CARVEDILOL
  3. FAMOTIDINE. [Concomitant]
     Active Substance: FAMOTIDINE
  4. BICALUTAMIDE. [Concomitant]
     Active Substance: BICALUTAMIDE
  5. FUROSEMIDE. [Concomitant]
     Active Substance: FUROSEMIDE
  6. BAYASPIRIN (ACETYLSALICYLIC ACID) (ACETYLSALICYLIC ACID) [Concomitant]
     Active Substance: ASPIRIN
  7. WARFARIN /00014803/ (WARFARIN POTASSIUM) [Concomitant]

REACTIONS (5)
  - Diarrhoea [None]
  - Cardiac failure [None]
  - Pyrexia [None]
  - Decreased appetite [None]
  - Hyperthermia [None]
